FAERS Safety Report 8159945-1 (Version None)
Quarter: 2012Q1

REPORT INFORMATION
  Report Type: 
  Country: None (occurrence: None)
  Receive Date: 20120223
  Receipt Date: 20120217
  Transmission Date: 20120608
  Serious: Yes (Life-Threatening)
  Sender: FDA-Public Use
  Company Number: GB-GLAXOSMITHKLINE-B0782693A

PATIENT
  Age: 27 Year
  Sex: Female

DRUGS (1)
  1. NICOTINE [Suspect]
     Indication: EX-TOBACCO USER
     Route: 002
     Dates: start: 20120201, end: 20120201

REACTIONS (3)
  - ANAPHYLACTIC SHOCK [None]
  - PARAESTHESIA ORAL [None]
  - LIP SWELLING [None]
